FAERS Safety Report 18739811 (Version 1)
Quarter: 2021Q1

REPORT INFORMATION
  Report Type: Spontaneous
  Country: US (occurrence: US)
  Receive Date: 20210113
  Receipt Date: 20210113
  Transmission Date: 20210419
  Serious: Yes (Hospitalization)
  Sender: FDA-Public Use
  Company Number: None

PATIENT
  Age: 35 Year
  Sex: Female
  Weight: 126 kg

DRUGS (11)
  1. PAMPRIN MULTI?SYMPTOM MAXIMUM STRENGTH [Suspect]
     Active Substance: ACETAMINOPHEN\PAMABROM\PYRILAMINE MALEATE
     Indication: HEADACHE
     Dosage: ?          QUANTITY:2 TABLET(S);?
     Route: 048
     Dates: start: 20210109, end: 20210109
  2. WELLBUTRIN [Concomitant]
     Active Substance: BUPROPION HYDROCHLORIDE
  3. TRAMADOL. [Concomitant]
     Active Substance: TRAMADOL
  4. PAMPRIN MULTI?SYMPTOM MAXIMUM STRENGTH [Suspect]
     Active Substance: ACETAMINOPHEN\PAMABROM\PYRILAMINE MALEATE
     Indication: BACK PAIN
     Dosage: ?          QUANTITY:2 TABLET(S);?
     Route: 048
     Dates: start: 20210109, end: 20210109
  5. SOLGAR [Concomitant]
  6. VITAMIN D3 [Concomitant]
     Active Substance: CHOLECALCIFEROL
  7. PROZAC [Concomitant]
     Active Substance: FLUOXETINE HYDROCHLORIDE
  8. ZYRTEC [Concomitant]
     Active Substance: CETIRIZINE HYDROCHLORIDE
  9. MONTELUKAST SODIUM. [Concomitant]
     Active Substance: MONTELUKAST SODIUM
  10. PAMPRIN MULTI?SYMPTOM MAXIMUM STRENGTH [Suspect]
     Active Substance: ACETAMINOPHEN\PAMABROM\PYRILAMINE MALEATE
     Indication: DYSMENORRHOEA
     Dosage: ?          QUANTITY:2 TABLET(S);?
     Route: 048
     Dates: start: 20210109, end: 20210109
  11. HYOSCYAMINE SULFATE. [Concomitant]
     Active Substance: HYOSCYAMINE SULFATE

REACTIONS (10)
  - Pain [None]
  - Dyspepsia [None]
  - Vomiting [None]
  - Pancreatitis acute [None]
  - Hypokalaemia [None]
  - Impaired work ability [None]
  - Ulcer [None]
  - Lipase increased [None]
  - Middle insomnia [None]
  - Chest pain [None]

NARRATIVE: CASE EVENT DATE: 20210110
